FAERS Safety Report 26164348 (Version 1)
Quarter: 2025Q4

REPORT INFORMATION
  Report Type: Spontaneous
  Country: US (occurrence: US)
  Receive Date: 20251216
  Receipt Date: 20251216
  Transmission Date: 20260117
  Serious: Yes (Hospitalization, Other)
  Sender: VERTEX
  Company Number: US-VERTEX PHARMACEUTICALS-2025-020985

PATIENT
  Age: 23 Year
  Sex: Female

DRUGS (1)
  1. ELEXACAFTOR\IVACAFTOR\TEZACAFTOR [Suspect]
     Active Substance: ELEXACAFTOR\IVACAFTOR\TEZACAFTOR
     Indication: Cystic fibrosis
     Dosage: UNKNOWN DOSAGE REGIMEN
     Route: 061

REACTIONS (10)
  - Portal hypertension [Unknown]
  - Biliary cirrhosis [Unknown]
  - Abdominal adhesions [Unknown]
  - Infectious mononucleosis [Unknown]
  - Cystic fibrosis hepatic disease [Unknown]
  - Spontaneous bacterial peritonitis [Unknown]
  - Bile duct stenosis [Unknown]
  - Post procedural complication [Recovered/Resolved]
  - Hepatic failure [Unknown]
  - Hyperbilirubinaemia [Recovered/Resolved]
